FAERS Safety Report 25318106 (Version 1)
Quarter: 2025Q2

REPORT INFORMATION
  Report Type: Spontaneous
  Country: CN (occurrence: CN)
  Receive Date: 20250515
  Receipt Date: 20250515
  Transmission Date: 20250717
  Serious: Yes (Hospitalization)
  Sender: ASTELLAS
  Company Number: CN-GILEAD-2025-0713206

PATIENT
  Age: 51 Year
  Sex: Male
  Weight: 51 kg

DRUGS (1)
  1. AMPHOTERICIN B [Suspect]
     Active Substance: AMPHOTERICIN B
     Indication: Candida infection
     Dosage: 150 MG, QD [150MG + 5% GLUCOSE SOLUTION 250ML]
     Route: 042
     Dates: start: 20250429, end: 20250429

REACTIONS (2)
  - Hypoaesthesia [Recovering/Resolving]
  - Back pain [Recovering/Resolving]

NARRATIVE: CASE EVENT DATE: 20250429
